FAERS Safety Report 17835656 (Version 1)
Quarter: 2020Q2

REPORT INFORMATION
  Report Type: Spontaneous
  Country: US (occurrence: US)
  Receive Date: 20200528
  Receipt Date: 20200528
  Transmission Date: 20200714
  Serious: Yes (Life-Threatening, Hospitalization, Other)
  Sender: FDA-Public Use
  Company Number: US-AKRON, INC.-2084273

PATIENT
  Sex: Female
  Weight: 135 kg

DRUGS (1)
  1. ACETAMINOPHEN AND CODEINE PHOSPHATE ORAL SOLUTION [Suspect]
     Active Substance: ACETAMINOPHEN\CODEINE PHOSPHATE
     Route: 048

REACTIONS (5)
  - Suicide attempt [Recovered/Resolved]
  - Endotracheal intubation [Recovered/Resolved]
  - Poisoning [Recovered/Resolved]
  - Mental disorder [Recovered/Resolved]
  - Areflexia [Recovered/Resolved]
